FAERS Safety Report 5857541-X (Version None)
Quarter: 2008Q3

REPORT INFORMATION
  Report Type: 
  Country: None (occurrence: None)
  Receive Date: 20080818
  Receipt Date: 20080627
  Transmission Date: 20090109
  Serious: No
  Sender: FDA-Public Use
  Company Number: TPA2008A00995

PATIENT
  Sex: Female

DRUGS (2)
  1. ROZEREM [Suspect]
     Dosage: 8 MG, QHS, PER ORAL
     Route: 048
     Dates: start: 20080601, end: 20080601
  2. LUNESTA [Suspect]
     Dosage: 3 MG, QHS, PER ORAL
     Route: 048

REACTIONS (3)
  - FEELING ABNORMAL [None]
  - MENTAL IMPAIRMENT [None]
  - SOMNOLENCE [None]
